FAERS Safety Report 12581043 (Version 1)
Quarter: 2016Q3

REPORT INFORMATION
  Report Type: Spontaneous
  Country: GB (occurrence: GB)
  Receive Date: 20160721
  Receipt Date: 20160721
  Transmission Date: 20161109
  Serious: Yes (Life-Threatening, Hospitalization, Other)
  Sender: FDA-Public Use
  Company Number: PHHY2016GB096056

PATIENT
  Age: 23 Year
  Sex: Female
  Weight: 70 kg

DRUGS (3)
  1. RIFAMPICIN [Suspect]
     Active Substance: RIFAMPIN
     Indication: CHOLESTASIS OF PREGNANCY
     Dosage: 150 MG, BID (STARTED AROUND 27 WEEKS GESTATION)
     Route: 048
     Dates: start: 20160215, end: 20160306
  2. URSODEOXYCHOLIC ACID [Suspect]
     Active Substance: URSODIOL
     Indication: CHOLESTASIS OF PREGNANCY
     Dosage: 500 MG, TID
     Route: 048
     Dates: start: 20160115, end: 20160306
  3. PHYTOMENADIONE [Concomitant]
     Active Substance: PHYTONADIONE
     Indication: PRODUCT USED FOR UNKNOWN INDICATION
     Route: 065

REACTIONS (7)
  - Nephrolithiasis [Recovered/Resolved]
  - Ureteric obstruction [Recovered/Resolved]
  - Malaise [Recovered/Resolved]
  - Premature labour [Unknown]
  - Premature delivery [Unknown]
  - Sepsis [Recovered/Resolved]
  - Maternal exposure during pregnancy [Unknown]

NARRATIVE: CASE EVENT DATE: 20160306
